FAERS Safety Report 10978594 (Version 1)
Quarter: 2015Q2

REPORT INFORMATION
  Report Type: Spontaneous
  Country: US (occurrence: US)
  Receive Date: 20150402
  Receipt Date: 20150402
  Transmission Date: 20150821
  Serious: Yes (Other)
  Sender: FDA-Public Use
  Company Number: US-ARIAD PHARMACEUTICALS, INC-2015US004680

PATIENT
  Sex: Male

DRUGS (2)
  1. ICLUSIG [Suspect]
     Active Substance: PONATINIB
     Indication: CHRONIC MYELOID LEUKAEMIA
     Dosage: 15 MG, QD
     Route: 048
  2. ICLUSIG [Suspect]
     Active Substance: PONATINIB
     Dosage: UNK

REACTIONS (4)
  - Hypertension [Unknown]
  - Lipase increased [Unknown]
  - Renal vessel disorder [Unknown]
  - Amylase increased [Unknown]
